FAERS Safety Report 18459790 (Version 2)
Quarter: 2020Q4

REPORT INFORMATION
  Report Type: Spontaneous
  Country: US (occurrence: US)
  Receive Date: 20201103
  Receipt Date: 20201106
  Transmission Date: 20210114
  Serious: No
  Sender: FDA-Public Use
  Company Number: US-PFIZER INC-2020425529

PATIENT
  Age: 68 Year
  Sex: Female
  Weight: 70.31 kg

DRUGS (2)
  1. CHANTIX [Suspect]
     Active Substance: VARENICLINE TARTRATE
     Indication: SMOKING CESSATION THERAPY
     Dosage: 0.5 MG, DAILY(1 STARTING WEEK 0.5MG X 11 TABLETS)
     Dates: start: 20200930
  2. CHANTIX [Suspect]
     Active Substance: VARENICLINE TARTRATE
     Dosage: 1 MG, DAILY(3 CONTINUOUS WEEKS 1MG X 42 TABLETS)

REACTIONS (1)
  - Drug ineffective [Unknown]
